FAERS Safety Report 8429952 (Version 4)
Quarter: 2015Q4

REPORT INFORMATION
  Report Type: Spontaneous
  Country: US (occurrence: US)
  Receive Date: 20120228
  Receipt Date: 20151119
  Transmission Date: 20160305
  Serious: Yes (Hospitalization, Other)
  Sender: FDA-Public Use
  Company Number: US-JNJFOC-20120207724

PATIENT
  Age: 65 Year
  Sex: Male
  Weight: 113.4 kg

DRUGS (22)
  1. REMICADE [Suspect]
     Active Substance: INFLIXIMAB
     Indication: CROHN^S DISEASE
     Route: 042
     Dates: start: 200409, end: 2009
  2. REMICADE [Suspect]
     Active Substance: INFLIXIMAB
     Indication: CROHN^S DISEASE
     Dosage: 10-12 VIALS
     Route: 042
     Dates: start: 20120608
  3. VITAMINA B12 [Concomitant]
     Route: 065
     Dates: start: 2010
  4. INSULIN [Suspect]
     Active Substance: INSULIN NOS
     Indication: PRODUCT USED FOR UNKNOWN INDICATION
     Route: 065
  5. DILAUDID [Concomitant]
     Active Substance: HYDROMORPHONE HYDROCHLORIDE
     Route: 048
     Dates: start: 20120608
  6. DIAZEPAM. [Concomitant]
     Active Substance: DIAZEPAM
     Route: 048
     Dates: start: 20120608
  7. LYRICA [Concomitant]
     Active Substance: PREGABALIN
     Indication: DIABETES MELLITUS
     Route: 048
     Dates: start: 2011
  8. NOVOLOG [Concomitant]
     Active Substance: INSULIN ASPART
     Route: 065
     Dates: start: 20120608
  9. AMBIEN [Concomitant]
     Active Substance: ZOLPIDEM TARTRATE
     Route: 048
     Dates: start: 20120608
  10. METHOTREXATE [Suspect]
     Active Substance: METHOTREXATE
     Indication: PRODUCT USED FOR UNKNOWN INDICATION
     Route: 065
  11. SIMVASTATIN. [Concomitant]
     Active Substance: SIMVASTATIN
     Indication: BLOOD CHOLESTEROL
     Route: 048
     Dates: start: 20120608
  12. LISINOPRIL. [Concomitant]
     Active Substance: LISINOPRIL
     Route: 048
     Dates: start: 20120608
  13. ONGLYZA [Concomitant]
     Active Substance: SAXAGLIPTIN HYDROCHLORIDE
     Route: 048
     Dates: start: 20120608
  14. HUMALOG [Concomitant]
     Active Substance: INSULIN LISPRO
     Indication: DIABETES MELLITUS
     Dosage: MIX 75/25
     Route: 065
     Dates: start: 2011
  15. CYMBALTA [Concomitant]
     Active Substance: DULOXETINE HYDROCHLORIDE
     Route: 048
     Dates: start: 20120608
  16. REGLAN [Concomitant]
     Active Substance: METOCLOPRAMIDE HYDROCHLORIDE
     Route: 048
     Dates: start: 20120608
  17. LYRICA [Concomitant]
     Active Substance: PREGABALIN
     Indication: DIABETES MELLITUS
     Route: 048
     Dates: start: 20120608
  18. LEVEMIR [Concomitant]
     Active Substance: INSULIN DETEMIR
     Route: 065
     Dates: start: 20120608
  19. VITAMIN D3 [Concomitant]
     Active Substance: CHOLECALCIFEROL
     Route: 065
     Dates: start: 2010
  20. REMICADE [Suspect]
     Active Substance: INFLIXIMAB
     Indication: CROHN^S DISEASE
     Route: 042
     Dates: start: 2009
  21. NEXIUM [Concomitant]
     Active Substance: ESOMEPRAZOLE MAGNESIUM
     Route: 048
     Dates: start: 20120608
  22. FLOMAX [Concomitant]
     Active Substance: TAMSULOSIN HYDROCHLORIDE
     Indication: POLLAKIURIA
     Route: 048
     Dates: start: 20120608

REACTIONS (36)
  - Gastritis [Recovered/Resolved]
  - Pyrexia [Recovered/Resolved]
  - Heart rate increased [Not Recovered/Not Resolved]
  - Palpitations [Not Recovered/Not Resolved]
  - Depression [Recovered/Resolved]
  - Self-medication [Recovered/Resolved]
  - Insomnia [Recovered/Resolved]
  - Bacterial infection [Recovered/Resolved]
  - Seizure [Recovered/Resolved]
  - Drug ineffective [Unknown]
  - Pancreatic disorder [Recovered/Resolved]
  - Faeces discoloured [Not Recovered/Not Resolved]
  - Spinal column stenosis [Unknown]
  - Osteoarthritis [Recovered/Resolved]
  - Blood glucose increased [Recovered/Resolved]
  - Gastrooesophageal reflux disease [Recovered/Resolved]
  - Aortic aneurysm [Recovered/Resolved]
  - Dysuria [Recovered/Resolved]
  - Crohn^s disease [Recovered/Resolved]
  - Cholelithiasis [Recovered/Resolved]
  - Anxiety [Recovered/Resolved]
  - Gallbladder operation [Unknown]
  - Abdominal pain upper [Not Recovered/Not Resolved]
  - Bursitis [Unknown]
  - Pain [Not Recovered/Not Resolved]
  - Abdominal pain [Not Recovered/Not Resolved]
  - Infection [Recovered/Resolved]
  - Neck pain [Not Recovered/Not Resolved]
  - Intervertebral disc protrusion [Recovered/Resolved]
  - Pollakiuria [Not Recovered/Not Resolved]
  - Vitamin D deficiency [Recovered/Resolved]
  - Arthralgia [Not Recovered/Not Resolved]
  - Gastroenteritis [Recovered/Resolved]
  - Gout [Recovered/Resolved]
  - Urinary hesitation [Recovered/Resolved]
  - Spinal osteoarthritis [Unknown]

NARRATIVE: CASE EVENT DATE: 2006
